FAERS Safety Report 9830967 (Version 1)
Quarter: 2014Q1

REPORT INFORMATION
  Report Type: Spontaneous
  Country: CA (occurrence: CA)
  Receive Date: 20140120
  Receipt Date: 20140120
  Transmission Date: 20141002
  Serious: Yes (Hospitalization, Other)
  Sender: FDA-Public Use
  Company Number: PHHY2014CA004771

PATIENT
  Age: 50 Year
  Sex: Female
  Weight: 79 kg

DRUGS (1)
  1. EVEROLIMUS [Suspect]
     Dosage: 1 DF, EVERY DAY
     Route: 048

REACTIONS (5)
  - Bronchoalveolar lavage abnormal [Recovered/Resolved]
  - Lung infiltration [Recovered/Resolved]
  - Lymphocytic infiltration [Recovered/Resolved]
  - Atelectasis [Recovered/Resolved]
  - Dyspnoea [Recovered/Resolved]
